FAERS Safety Report 8379958-4 (Version None)
Quarter: 2012Q1

REPORT INFORMATION
  Report Type: 
  Country: None (occurrence: None)
  Receive Date: 20120323
  Receipt Date: 20110817
  Transmission Date: 20120608
  Serious: Yes (Other)
  Sender: FDA-Public Use
  Company Number: 163-21880-11030974

PATIENT
  Age: 77 Year
  Sex: Female
  Weight: 52.1637 kg

DRUGS (13)
  1. BENADRYL [Concomitant]
  2. REVLIMID [Suspect]
     Indication: MULTIPLE MYELOMA
     Dosage: 25 MG, 1 IN 1 D, PO , 10 MG, 1 IN 1 D, PO
     Route: 048
     Dates: start: 20091218
  3. REVLIMID [Suspect]
     Indication: MULTIPLE MYELOMA
     Dosage: 25 MG, 1 IN 1 D, PO , 10 MG, 1 IN 1 D, PO
     Route: 048
     Dates: start: 20110111
  4. VELCADE [Suspect]
     Indication: MULTIPLE MYELOMA
     Dates: start: 20110101
  5. VELCADE [Suspect]
     Indication: MULTIPLE MYELOMA
     Dates: start: 20091218
  6. HYDROCODONE/ACETAMINOPHEN (REMEDEINE) [Concomitant]
  7. DIFLUCAN [Concomitant]
  8. LEVAQUIN [Concomitant]
  9. ACYCLOVIR [Concomitant]
  10. BACTRIM DS [Concomitant]
  11. CIPROFLOXACIN [Concomitant]
  12. ZOFRAN [Concomitant]
  13. DEXAMETHASONE [Suspect]
     Indication: MULTIPLE MYELOMA
     Dates: start: 20091218

REACTIONS (1)
  - PANCYTOPENIA [None]
